FAERS Safety Report 6094609-X (Version None)
Quarter: 2009Q1

REPORT INFORMATION
  Report Type: 
  Country: None (occurrence: None)
  Receive Date: 20090226
  Receipt Date: 20090216
  Transmission Date: 20090719
  Serious: Yes (Other)
  Sender: FDA-Public Use
  Company Number: PHHY2009FR02679

PATIENT
  Age: 83 Year
  Sex: Female
  Weight: 60 kg

DRUGS (7)
  1. ACLASTA [Suspect]
     Indication: SPINAL FRACTURE
     Dosage: 5 MG
     Dates: start: 20081001
  2. ACLASTA [Suspect]
     Indication: OSTEOPOROSIS
  3. MONOCRIXO [Suspect]
     Indication: MUSCULOSKELETAL PAIN
     Dosage: 200 MG, BID
  4. MONOCRIXO [Suspect]
     Dosage: 100 MG/DAY
  5. EFFERALGAN [Concomitant]
     Indication: PAIN
     Dosage: UNK
  6. SPASFON [Concomitant]
     Indication: PAIN
     Dosage: UNK
  7. SYMBICORT [Concomitant]
     Dosage: IN MORNING

REACTIONS (5)
  - HYPERHIDROSIS [None]
  - HYPOGLYCAEMIA [None]
  - MUSCULOSKELETAL PAIN [None]
  - NERVOUS SYSTEM DISORDER [None]
  - STRESS [None]
